FAERS Safety Report 5968413-4 (Version None)
Quarter: 2008Q4

REPORT INFORMATION
  Report Type: 
  Country: None (occurrence: None)
  Receive Date: 20081126
  Receipt Date: 20081120
  Transmission Date: 20090506
  Serious: Yes (Other)
  Sender: FDA-Public Use
  Company Number: MX-ELI_LILLY_AND_COMPANY-MX200811001779

PATIENT
  Sex: Female

DRUGS (6)
  1. STRATTERA [Suspect]
     Indication: ATTENTION DEFICIT/HYPERACTIVITY DISORDER
     Dosage: 0.5 MG/KG, UNKNOWN
     Route: 065
  2. STRATTERA [Suspect]
     Dosage: 0.8 MG/KG, UNKNOWN
     Route: 065
  3. STRATTERA [Suspect]
     Dosage: 1.2 MG/KG, UNKNOWN
     Route: 065
  4. STRATTERA [Suspect]
     Dosage: 25 MG, UNKNOWN
     Route: 065
  5. STRATTERA [Suspect]
     Dosage: 40 MG, UNKNOWN
     Route: 065
  6. STRATTERA [Suspect]
     Dosage: 20 MG, DAILY (1/D)
     Route: 065

REACTIONS (4)
  - BRADYCARDIA [None]
  - BRADYPNOEA [None]
  - HYPERHIDROSIS [None]
  - NO THERAPEUTIC RESPONSE [None]
